FAERS Safety Report 17597061 (Version 1)
Quarter: 2020Q1

REPORT INFORMATION
  Report Type: Spontaneous
  Country: FR (occurrence: FR)
  Receive Date: 20200330
  Receipt Date: 20200330
  Transmission Date: 20200409
  Serious: Yes (Life-Threatening, Hospitalization, Other)
  Sender: FDA-Public Use
  Company Number: FR-GLAXOSMITHKLINE-FR2020054551

PATIENT
  Age: 2 Year
  Sex: Female
  Weight: 12.5 kg

DRUGS (7)
  1. ZOVIRAX [Suspect]
     Active Substance: ACYCLOVIR
     Indication: PROPHYLAXIS
     Dosage: 100 MG, QD
     Route: 048
     Dates: start: 201907
  2. LASILIX [Interacting]
     Active Substance: FUROSEMIDE
     Indication: URINE OUTPUT DECREASED
     Dosage: 6.26 MG, QD
     Route: 042
     Dates: start: 20190720, end: 20190813
  3. ROVALCYTE [Interacting]
     Active Substance: VALGANCICLOVIR HYDROCHLORIDE
     Indication: PROPHYLAXIS
     Dosage: 100 MG, QD
     Route: 048
     Dates: start: 20190709, end: 20190814
  4. IMUREL [Interacting]
     Active Substance: AZATHIOPRINE SODIUM
     Indication: LUNG TRANSPLANT
     Dosage: 5 MG, QD
     Route: 048
     Dates: start: 20190703, end: 20190811
  5. IMIPENEM + CILASTATIN SODIUM [Interacting]
     Active Substance: CILASTATIN SODIUM\IMIPENEM
     Indication: ACUTE RESPIRATORY DISTRESS SYNDROME
     Dosage: 600 MG, QD
     Route: 041
     Dates: start: 20190730, end: 20190811
  6. CIDOFOVIR. [Interacting]
     Active Substance: CIDOFOVIR
     Indication: CYTOMEGALOVIRUS INFECTION
     Dosage: 5 MG/KG, WE
     Route: 041
     Dates: start: 20190803, end: 20190816
  7. NEORAL [Interacting]
     Active Substance: CYCLOSPORINE
     Indication: LUNG TRANSPLANT
     Dosage: 250 MG, QD
     Route: 048
     Dates: start: 20190703

REACTIONS (3)
  - Acute kidney injury [Recovering/Resolving]
  - Drug interaction [Unknown]
  - Hyperlactacidaemia [Recovered/Resolved]

NARRATIVE: CASE EVENT DATE: 20190811
